FAERS Safety Report 18923857 (Version 2)
Quarter: 2021Q1

REPORT INFORMATION
  Report Type: Spontaneous
  Country: US (occurrence: US)
  Receive Date: 20210222
  Receipt Date: 20210329
  Transmission Date: 20210420
  Serious: No
  Sender: FDA-Public Use
  Company Number: US-TAKEDA-US202015906

PATIENT
  Age: 22 Year
  Sex: Female

DRUGS (4)
  1. CALCITROL [Concomitant]
     Route: 065
  2. NATPARA (PARATHYROID HORMONE) [Suspect]
     Active Substance: PARATHYROID HORMONE
     Indication: HYPOCALCAEMIA
     Dosage: 100 MICROGRAM, QD
     Route: 058
  3. NATPARA (PARATHYROID HORMONE) [Suspect]
     Active Substance: PARATHYROID HORMONE
     Indication: HYPOCALCAEMIA
     Dosage: 100 MICROGRAM, QD
     Route: 058
  4. NATPARA (PARATHYROID HORMONE) [Suspect]
     Active Substance: PARATHYROID HORMONE
     Indication: HYPOCALCAEMIA
     Dosage: 100 MICROGRAM, QD
     Route: 058

REACTIONS (7)
  - Paraesthesia [Unknown]
  - Product availability issue [Unknown]
  - Muscle spasms [Unknown]
  - Hypoaesthesia [Unknown]
  - Device issue [Unknown]
  - Product dose omission issue [Unknown]
  - Hypocalcaemia [Unknown]

NARRATIVE: CASE EVENT DATE: 20210212
